FAERS Safety Report 22181308 (Version 1)
Quarter: 2023Q2

REPORT INFORMATION
  Report Type: Spontaneous
  Country: TR (occurrence: TR)
  Receive Date: 20230406
  Receipt Date: 20230406
  Transmission Date: 20230722
  Serious: Yes (Other)
  Sender: FDA-Public Use
  Company Number: TR-PFIZER INC-PV202300058348

PATIENT
  Age: 27 Year
  Sex: Female

DRUGS (7)
  1. CARBOPLATIN [Suspect]
     Active Substance: CARBOPLATIN
     Indication: Hodgkin^s disease nodular sclerosis
     Dosage: UNK, CYCLIC
  2. DOXORUBICIN [Suspect]
     Active Substance: DOXORUBICIN
     Indication: Hodgkin^s disease nodular sclerosis
     Dosage: UNK, CYCLIC, SIX CYCLES
  3. BLEOMYCIN [Suspect]
     Active Substance: BLEOMYCIN SULFATE
     Indication: Hodgkin^s disease nodular sclerosis
     Dosage: UNK, CYCLIC, SIX CYCLES
  4. VINBLASTINE [Suspect]
     Active Substance: VINBLASTINE
     Indication: Hodgkin^s disease nodular sclerosis
     Dosage: UNK, CYCLIC, SIX CYCLES
  5. DACARBAZINE [Suspect]
     Active Substance: DACARBAZINE
     Indication: Hodgkin^s disease nodular sclerosis
     Dosage: UNK, CYCLIC, SIX CYCLES
  6. IFOSFAMIDE [Suspect]
     Active Substance: IFOSFAMIDE
     Indication: Hodgkin^s disease nodular sclerosis
     Dosage: UNK, CYCLIC
  7. ETOPOSIDE [Suspect]
     Active Substance: ETOPOSIDE
     Indication: Hodgkin^s disease nodular sclerosis
     Dosage: UNK, CYCLIC

REACTIONS (3)
  - Premature labour [Unknown]
  - Maternal exposure during pregnancy [Unknown]
  - Off label use [Unknown]
